FAERS Safety Report 4331701-1 (Version None)
Quarter: 2004Q2

REPORT INFORMATION
  Report Type: 
  Country: None (occurrence: None)
  Receive Date: 20040405
  Receipt Date: 20030313
  Transmission Date: 20050107
  Serious: No
  Sender: FDA-Public Use
  Company Number: US-GLAXOSMITHKLINE-A0400246A

PATIENT
  Age: 68 Year
  Sex: Female

DRUGS (2)
  1. FLOVENT [Suspect]
     Dosage: 2PUFF TWICE PER DAY
     Route: 055
  2. GUAIFENEX [Concomitant]

REACTIONS (11)
  - ARTHRALGIA [None]
  - CANDIDIASIS [None]
  - COLD SWEAT [None]
  - COUGH [None]
  - DYSGEUSIA [None]
  - JOINT SWELLING [None]
  - NAUSEA [None]
  - PYREXIA [None]
  - RASH [None]
  - SWOLLEN TONGUE [None]
  - THROAT TIGHTNESS [None]
